FAERS Safety Report 24535645 (Version 1)
Quarter: 2024Q4

REPORT INFORMATION
  Report Type: Report from Study
  Country: US (occurrence: US)
  Receive Date: 20241022
  Receipt Date: 20241022
  Transmission Date: 20250114
  Serious: Yes (Hospitalization, Other)
  Sender: JAZZ
  Company Number: US-JAZZ-2021-US-014632

PATIENT
  Sex: Female

DRUGS (26)
  1. XYREM [Suspect]
     Active Substance: SODIUM OXYBATE
     Indication: Narcolepsy
     Dosage: 1.5 GRAM, BID
     Route: 048
     Dates: start: 201905, end: 201906
  2. XYREM [Suspect]
     Active Substance: SODIUM OXYBATE
     Indication: Cataplexy
     Dosage: DOSE ADJUSTMENT
     Route: 048
     Dates: start: 201906, end: 201909
  3. XYREM [Suspect]
     Active Substance: SODIUM OXYBATE
     Indication: Somnolence
     Dosage: 3 GRAM, BID
     Route: 048
     Dates: start: 201909
  4. XYREM [Suspect]
     Active Substance: SODIUM OXYBATE
     Dosage: 3.5 GRAM, BID
     Route: 048
  5. XYREM [Suspect]
     Active Substance: SODIUM OXYBATE
     Dosage: UNK
  6. CETIRIZINE HCL [Concomitant]
     Active Substance: CETIRIZINE HYDROCHLORIDE
     Dosage: UNK
     Dates: start: 20180820
  7. GUANFACINE HYDROCHLORIDE [Concomitant]
     Active Substance: GUANFACINE HYDROCHLORIDE
     Dosage: UNK
     Dates: start: 20181226
  8. OMEPRAZOLE DARNITSA [Concomitant]
     Dosage: UNK
     Dates: start: 20100516
  9. FLINTSTONE VITAMINS WITH IRON [Concomitant]
     Dosage: UNK
     Dates: start: 20190116
  10. LYRICA [Concomitant]
     Active Substance: PREGABALIN
     Dosage: UNK
     Dates: start: 20201118
  11. CYPROHEPTADINE [Concomitant]
     Active Substance: CYPROHEPTADINE
     Dosage: UNK
     Dates: start: 20201118
  12. ACETAMINOPHEN [Concomitant]
     Active Substance: ACETAMINOPHEN
  13. ASPIRIN\CAFFEINE [Concomitant]
     Active Substance: ASPIRIN\CAFFEINE
  14. CELECOXIB [Concomitant]
     Active Substance: CELECOXIB
  15. DOCUSATE SODIUM [Concomitant]
     Active Substance: DOCUSATE SODIUM
  16. DULOXETINE [Concomitant]
     Active Substance: DULOXETINE
  17. GUANFACINE [Concomitant]
     Active Substance: GUANFACINE
  18. LAMOTRIGINE [Concomitant]
     Active Substance: LAMOTRIGINE
  19. MAGNESIUM OXIDE [Concomitant]
     Active Substance: MAGNESIUM OXIDE
  20. METHOCARBAMOL [Concomitant]
     Active Substance: METHOCARBAMOL
  21. MONTELUKAST [Concomitant]
     Active Substance: MONTELUKAST
  22. ONDANSETRON [Concomitant]
     Active Substance: ONDANSETRON
  23. PALIPERIDONE [Concomitant]
     Active Substance: PALIPERIDONE
  24. POLYETHYLENE GLYCOL\PROPYLENE GLYCOL [Concomitant]
     Active Substance: POLYETHYLENE GLYCOL\PROPYLENE GLYCOL
  25. RIBOFLAVIN [Concomitant]
     Active Substance: RIBOFLAVIN
  26. VALACYCLOVIR HYDROCHLORIDE [Concomitant]
     Active Substance: VALACYCLOVIR HYDROCHLORIDE

REACTIONS (8)
  - Seizure [Unknown]
  - Migraine [Not Recovered/Not Resolved]
  - Coronavirus infection [Unknown]
  - Nasopharyngitis [Unknown]
  - Sleep apnoea syndrome [Unknown]
  - Constipation [Unknown]
  - Nasal congestion [Unknown]
  - Intentional product use issue [Unknown]
